FAERS Safety Report 5826544-3 (Version None)
Quarter: 2008Q3

REPORT INFORMATION
  Report Type: 
  Country: None (occurrence: None)
  Receive Date: 20080729
  Receipt Date: 20080721
  Transmission Date: 20090109
  Serious: Yes (Life-Threatening, Other)
  Sender: FDA-Public Use
  Company Number: US-ELI_LILLY_AND_COMPANY-US200805000146

PATIENT
  Sex: Male
  Weight: 102.4 kg

DRUGS (12)
  1. BYETTA [Suspect]
     Indication: TYPE 2 DIABETES MELLITUS
     Dosage: 5 UG, 2/D
     Route: 030
     Dates: start: 20070404, end: 20070425
  2. BYETTA [Suspect]
     Dosage: 10 UG, 2/D
     Route: 030
     Dates: start: 20070425, end: 20070610
  3. METFORMIN HCL [Concomitant]
     Dosage: 1000 MG, 2/D
     Route: 048
  4. AMARYL [Concomitant]
     Dosage: UNK, 2/D
     Route: 048
  5. CELEBREX [Concomitant]
     Indication: TUMOUR ASSOCIATED FEVER
     Dosage: 200 MG, 2/D
     Route: 048
  6. ZOFRAN [Concomitant]
     Indication: NAUSEA
     Dosage: 8 MG, 2/D
  7. FLEXERIL [Concomitant]
     Dosage: 10 MG, EACH EVENING
     Route: 048
  8. TRICOR [Concomitant]
     Dosage: 145 MG, UNK
     Route: 048
     Dates: start: 20080101
  9. OXALIPLATIN [Concomitant]
     Indication: CHEMOTHERAPY
  10. XELODA [Concomitant]
     Indication: CHEMOTHERAPY
  11. PROVIGIL [Concomitant]
     Dosage: 100 MG, 2/D
     Route: 048
     Dates: start: 20080701
  12. ANTI-DIABETICS [Concomitant]
     Indication: TYPE 2 DIABETES MELLITUS
     Route: 048
     Dates: end: 20070101

REACTIONS (8)
  - ABDOMINAL PAIN UPPER [None]
  - BLOOD TRIGLYCERIDES INCREASED [None]
  - EARLY SATIETY [None]
  - NAUSEA [None]
  - PANCREATIC CARCINOMA METASTATIC [None]
  - PANCREATITIS [None]
  - SOCIAL AVOIDANT BEHAVIOUR [None]
  - TUMOUR ASSOCIATED FEVER [None]
